FAERS Safety Report 24423050 (Version 1)
Quarter: 2024Q4

REPORT INFORMATION
  Report Type: Spontaneous
  Country: US (occurrence: US)
  Receive Date: 20241010
  Receipt Date: 20241010
  Transmission Date: 20250115
  Serious: Yes (Hospitalization, Other)
  Sender: RANBAXY
  Company Number: US-SUN PHARMACEUTICAL INDUSTRIES LTD-2024R1-472447

PATIENT
  Age: 81 Year
  Sex: Male

DRUGS (7)
  1. METHYLPREDNISOLONE [Suspect]
     Active Substance: METHYLPREDNISOLONE
     Indication: Myocarditis
     Dosage: UNK (1000 MG)
     Route: 065
  2. PREDNISONE [Suspect]
     Active Substance: PREDNISONE
     Indication: Myocarditis
     Dosage: 60 MILLIGRAM, DAILY
     Route: 065
  3. PREDNISONE [Suspect]
     Active Substance: PREDNISONE
     Indication: Myocarditis
     Dosage: 80 MILLIGRAM, DAILY
     Route: 065
  4. ABATACEPT [Suspect]
     Active Substance: ABATACEPT
     Indication: Overlap syndrome
     Dosage: UNK
     Route: 065
  5. ABATACEPT [Suspect]
     Active Substance: ABATACEPT
     Indication: Myocarditis
  6. ABATACEPT [Suspect]
     Active Substance: ABATACEPT
     Indication: Myositis
  7. ABATACEPT [Suspect]
     Active Substance: ABATACEPT
     Indication: Myasthenia gravis

REACTIONS (3)
  - Drug ineffective [Unknown]
  - Retroperitoneal haemorrhage [Unknown]
  - Acute kidney injury [Unknown]
